FAERS Safety Report 12220961 (Version 1)
Quarter: 2016Q1

REPORT INFORMATION
  Report Type: Spontaneous
  Country: US (occurrence: None)
  Receive Date: 20160329
  Receipt Date: 20160329
  Transmission Date: 20160526
  Serious: Yes (Life-Threatening, Hospitalization)
  Sender: FDA-Public Use
  Company Number: None

PATIENT
  Sex: Male
  Weight: 42 kg

DRUGS (1)
  1. PAZOPANIB [Suspect]
     Active Substance: PAZOPANIB
     Indication: PERIPHERAL NERVE SHEATH TUMOUR MALIGNANT
     Route: 048
     Dates: start: 20150501, end: 20160125

REACTIONS (1)
  - Acquired haemophilia [None]

NARRATIVE: CASE EVENT DATE: 20160126
